FAERS Safety Report 19266103 (Version 2)
Quarter: 2021Q2

REPORT INFORMATION
  Report Type: Spontaneous
  Country: US (occurrence: US)
  Receive Date: 20210517
  Receipt Date: 20210517
  Transmission Date: 20210717
  Serious: Yes (Other)
  Sender: FDA-Public Use
  Company Number: US-CELGENEUS-USA-20210501637

PATIENT
  Sex: Female
  Weight: 54.43 kg

DRUGS (4)
  1. COVID VACCINATION [Concomitant]
     Indication: COVID-19 IMMUNISATION
     Route: 065
  2. REVLIMID [Suspect]
     Active Substance: LENALIDOMIDE
     Indication: PLASMA CELL MYELOMA
     Route: 048
     Dates: start: 2019
  3. REVLIMID [Suspect]
     Active Substance: LENALIDOMIDE
     Dosage: 10 MILLIGRAM
     Route: 048
     Dates: start: 20200105
  4. COVID VACCINATION [Concomitant]
     Route: 065

REACTIONS (6)
  - Immunodeficiency [Unknown]
  - Body height decreased [Unknown]
  - Pain [Unknown]
  - Anxiety [Unknown]
  - White blood cell count decreased [Unknown]
  - Pyrexia [Unknown]
